FAERS Safety Report 25975488 (Version 3)
Quarter: 2025Q4

REPORT INFORMATION
  Report Type: Spontaneous
  Country: US (occurrence: US)
  Receive Date: 20251029
  Receipt Date: 20251231
  Transmission Date: 20260118
  Serious: Yes (Disabling, Other)
  Sender: PFIZER
  Company Number: US-PFIZER INC-202500212580

PATIENT
  Age: 29 Year
  Sex: Female
  Weight: 45.36 kg

DRUGS (1)
  1. DEPO-PROVERA [Suspect]
     Active Substance: MEDROXYPROGESTERONE ACETATE
     Indication: Contraception
     Dosage: 50 MG, EVERY 3 MONTHS
     Route: 030
     Dates: start: 20210615, end: 20231213

REACTIONS (3)
  - Glioma [Not Recovered/Not Resolved]
  - Seizure [Recovering/Resolving]
  - Off label use [Unknown]

NARRATIVE: CASE EVENT DATE: 20210615
